FAERS Safety Report 9201696 (Version 1)
Quarter: 2013Q1

REPORT INFORMATION
  Report Type: Spontaneous
  Country: GB (occurrence: None)
  Receive Date: 20130327
  Receipt Date: 20130327
  Transmission Date: 20140127
  Serious: Yes (Other)
  Sender: FDA-Public Use
  Company Number: 2013-05025

PATIENT
  Age: 45 Year
  Sex: Female

DRUGS (3)
  1. ACETAMINOPHEN-CODEINE PHOSPHATE [Suspect]
     Indication: OSTEOARTHRITIS
     Route: 048
  2. NAPROXEN (NAPROXEN) [Concomitant]
  3. OMEPRAZOL /00661201/ (OMEPRAZOLE) [Concomitant]

REACTIONS (10)
  - Diplopia [None]
  - Lethargy [None]
  - Aphasia [None]
  - Disturbance in attention [None]
  - Thirst [None]
  - Dry mouth [None]
  - Constipation [None]
  - Fatigue [None]
  - Dizziness [None]
  - Malaise [None]
